FAERS Safety Report 10156233 (Version 1)
Quarter: 2014Q2

REPORT INFORMATION
  Report Type: Spontaneous
  Country: US (occurrence: US)
  Receive Date: 20140507
  Receipt Date: 20140507
  Transmission Date: 20141212
  Serious: Yes (Death)
  Sender: FDA-Public Use
  Company Number: US-ROCHE-1396622

PATIENT
  Sex: 0

DRUGS (2)
  1. HERCEPTIN [Suspect]
     Indication: GLOTTIS CARCINOMA
     Route: 065
  2. NEUPOGEN [Concomitant]
     Route: 065

REACTIONS (1)
  - Death [Fatal]
